FAERS Safety Report 6827388-6 (Version None)
Quarter: 2010Q3

REPORT INFORMATION
  Report Type: 
  Country: None (occurrence: None)
  Receive Date: 20100709
  Receipt Date: 20070116
  Transmission Date: 20110219
  Serious: No
  Sender: FDA-Public Use
  Company Number: US-PFIZER INC-2007005270

PATIENT
  Sex: Male
  Weight: 131.54 kg

DRUGS (7)
  1. CHANTIX [Suspect]
     Indication: SMOKING CESSATION THERAPY
     Route: 048
     Dates: start: 20070108
  2. CARDIZEM [Concomitant]
  3. BENICAR HCT [Concomitant]
  4. AMARYL [Concomitant]
  5. ACTOS [Concomitant]
  6. SPIRONOLACTONE [Concomitant]
  7. ALEVE (CAPLET) [Concomitant]

REACTIONS (2)
  - DRY EYE [None]
  - VISION BLURRED [None]
